FAERS Safety Report 7618212-2 (Version None)
Quarter: 2011Q3

REPORT INFORMATION
  Report Type: 
  Country: None (occurrence: None)
  Receive Date: 20110718
  Receipt Date: 20110712
  Transmission Date: 20111222
  Serious: Yes (Hospitalization)
  Sender: FDA-Public Use
  Company Number: US-GLAXOSMITHKLINE-A0936501A

PATIENT
  Age: 70 Year
  Sex: Female

DRUGS (18)
  1. WATER PILL [Concomitant]
  2. CLONIDINE [Concomitant]
  3. ADVAIR DISKUS 100/50 [Suspect]
     Indication: CHRONIC OBSTRUCTIVE PULMONARY DISEASE
     Dosage: 1PUFF TWICE PER DAY
     Route: 055
     Dates: start: 20100701
  4. METFORMIN HCL [Concomitant]
  5. UNSPECIFIED MEDICATION [Concomitant]
  6. OMEPRAZOLE [Concomitant]
  7. FUROSEMIDE [Concomitant]
  8. GLIMEPIRIDE [Concomitant]
  9. GABAPENTIN [Concomitant]
  10. NIFEDIPINE [Concomitant]
  11. METHYLPHENIDATE [Concomitant]
  12. PINDOLOL [Concomitant]
  13. LORA TAB [Concomitant]
  14. AMITRIPTYLINE HCL [Concomitant]
  15. SPIRIVA [Concomitant]
  16. METOPROLOL TARTRATE [Concomitant]
  17. ASPIRIN [Concomitant]
  18. DIAZEPAM [Concomitant]

REACTIONS (4)
  - DYSPNOEA [None]
  - PNEUMONIA [None]
  - OXYGEN SATURATION DECREASED [None]
  - SUFFOCATION FEELING [None]
